FAERS Safety Report 8846660 (Version 3)
Quarter: 2012Q4

REPORT INFORMATION
  Report Type: 
  Country: IT (occurrence: IT)
  Receive Date: 20121017
  Receipt Date: 20121101
  Transmission Date: 20130627
  Serious: Yes (Hospitalization, Other)
  Sender: FDA-Public Use
  Company Number: IT-PFIZER INC-2012251550

PATIENT
  Age: 74 Year
  Sex: Female

DRUGS (5)
  1. TRIATEC [Suspect]
     Indication: HYPERTENSION ARTERIAL
     Dosage: 1 DF, daily
     Route: 048
     Dates: start: 20100101, end: 20120906
  2. OLMESARTAN MEDOXOMIL [Suspect]
     Indication: HYPERTENSION ARTERIAL
     Dosage: 10 mg, 1x/day
     Route: 048
     Dates: start: 20120101, end: 20120906
  3. ATENOLOL [Suspect]
     Indication: HYPERTENSION ARTERIAL
     Dosage: 1 DF, daily
     Route: 048
     Dates: start: 20100101
  4. OLMETEC [Suspect]
     Indication: HYPERTENSION ARTERIAL
     Dosage: 1 DF, daily
     Route: 048
     Dates: start: 20100101, end: 20120906
  5. SODIUM BICARBONATE [Concomitant]
     Dosage: UNK

REACTIONS (8)
  - Jaundice [Recovered/Resolved]
  - Rash erythematous [Recovered/Resolved]
  - Liver function test abnormal [Recovered/Resolved]
  - Bile duct stenosis [Unknown]
  - Blood alkaline phosphatase increased [Unknown]
  - Blood creatinine increased [Unknown]
  - C-reactive protein increased [Unknown]
  - Epstein-Barr virus antibody positive [Unknown]
